FAERS Safety Report 13411842 (Version 3)
Quarter: 2022Q3

REPORT INFORMATION
  Report Type: Spontaneous
  Country: US (occurrence: US)
  Receive Date: 20170406
  Receipt Date: 20220922
  Transmission Date: 20221026
  Serious: No
  Sender: FDA-Public Use
  Company Number: US-JNJFOC-20170304004

PATIENT
  Sex: Male

DRUGS (3)
  1. RISPERDAL [Suspect]
     Active Substance: RISPERIDONE
     Indication: Attention deficit hyperactivity disorder
     Dosage: VARYING DOSES OF 0.5 AND 1 MG
     Route: 048
     Dates: start: 20070314, end: 20070507
  2. RISPERDAL [Suspect]
     Active Substance: RISPERIDONE
     Indication: Bipolar II disorder
     Route: 048
     Dates: start: 20070614
  3. RISPERDAL [Suspect]
     Active Substance: RISPERIDONE
     Dosage: VARYING DOSES OF 0.5 AND 1 MG
     Route: 048
     Dates: start: 20070907, end: 20080313

REACTIONS (2)
  - Emotional disorder [Unknown]
  - Gynaecomastia [Unknown]
